FAERS Safety Report 25233352 (Version 2)
Quarter: 2025Q2

REPORT INFORMATION
  Report Type: Spontaneous
  Country: JP (occurrence: JP)
  Receive Date: 20250424
  Receipt Date: 20250502
  Transmission Date: 20250716
  Serious: Yes (Death)
  Sender: UCB
  Company Number: JP-UCBJ-CD202505423UCBPHAPROD

PATIENT
  Age: 66 Year
  Sex: Female

DRUGS (1)
  1. BRIVIACT [Suspect]
     Active Substance: BRIVARACETAM
     Indication: Partial seizures
     Dosage: 50 MILLIGRAM, 2X/DAY (BID)
     Route: 048
     Dates: start: 20250404, end: 20250408

REACTIONS (2)
  - Death [Fatal]
  - Pyrexia [Unknown]

NARRATIVE: CASE EVENT DATE: 20250409
